FAERS Safety Report 5195559-3 (Version None)
Quarter: 2006Q4

REPORT INFORMATION
  Report Type: 
  Country: None (occurrence: None)
  Receive Date: 20061226
  Receipt Date: 20061226
  Transmission Date: 20070319
  Serious: Yes (Hospitalization)
  Sender: FDA-Public Use
  Company Number: None

PATIENT
  Age: 73 Year
  Sex: Female
  Weight: 68.0396 kg

DRUGS (6)
  1. REQUIP [Suspect]
     Indication: RESTLESS LEGS SYNDROME
     Dosage: 2 MG - I BELIEVE - DAILY PO
     Route: 048
     Dates: start: 20060801, end: 20061201
  2. COUMADIN [Concomitant]
  3. SYNTHROID [Concomitant]
  4. EZETIMIBE [Concomitant]
  5. NEXIUM [Concomitant]
  6. TRAMADONE [Concomitant]

REACTIONS (5)
  - DIZZINESS POSTURAL [None]
  - LOSS OF CONSCIOUSNESS [None]
  - SYNCOPE [None]
  - SYNCOPE VASOVAGAL [None]
  - VOMITING [None]
